FAERS Safety Report 4539414-8 (Version None)
Quarter: 2004Q4

REPORT INFORMATION
  Report Type: 
  Country: None (occurrence: None)
  Receive Date: 20041228
  Receipt Date: 20041217
  Transmission Date: 20050328
  Serious: Yes (Hospitalization)
  Sender: FDA-Public Use
  Company Number: IT-ROCHE-389774

PATIENT
  Age: 90 Year
  Sex: Male

DRUGS (1)
  1. ROCEPHIN [Suspect]
     Indication: BACTERIAL INFECTION
     Route: 042
     Dates: start: 20041205, end: 20041205

REACTIONS (3)
  - CONFUSIONAL STATE [None]
  - MALAISE [None]
  - PRURITUS [None]
